FAERS Safety Report 6251710-5 (Version None)
Quarter: 2009Q2

REPORT INFORMATION
  Report Type: 
  Country: None (occurrence: None)
  Receive Date: 20090630
  Receipt Date: 20090619
  Transmission Date: 20091009
  Serious: Yes (Other)
  Sender: FDA-Public Use
  Company Number: AU-SANOFI-SYNTHELABO-A01200906584

PATIENT
  Sex: Female

DRUGS (1)
  1. STILNOX CR [Suspect]
     Indication: DRUG USE FOR UNKNOWN INDICATION
     Route: 048

REACTIONS (7)
  - DISTURBANCE IN ATTENTION [None]
  - DIZZINESS [None]
  - HYPOVENTILATION [None]
  - MIDDLE EAR DISORDER [None]
  - PHARYNGEAL OEDEMA [None]
  - SOMNOLENCE [None]
  - THIRST [None]
